FAERS Safety Report 16929393 (Version 2)
Quarter: 2019Q4

REPORT INFORMATION
  Report Type: Report from Study
  Country: CA (occurrence: CA)
  Receive Date: 20191017
  Receipt Date: 20191022
  Transmission Date: 20200122
  Serious: No
  Sender: FDA-Public Use
  Company Number: CA-BEH-2019108187

PATIENT
  Age: 54 Year
  Sex: Male

DRUGS (3)
  1. HIZENTRA [Suspect]
     Active Substance: HUMAN IMMUNOGLOBULIN G
     Indication: SECONDARY IMMUNODEFICIENCY
     Dosage: 12 GRAM, QW
     Route: 058
     Dates: start: 20191011
  2. HIZENTRA [Suspect]
     Active Substance: HUMAN IMMUNOGLOBULIN G
     Indication: MANTLE CELL LYMPHOMA
     Dosage: UNK
     Route: 058
     Dates: start: 20191011
  3. HIZENTRA [Suspect]
     Active Substance: HUMAN IMMUNOGLOBULIN G
     Dosage: UNK
     Route: 058
     Dates: start: 20191011

REACTIONS (3)
  - Injection site pain [Unknown]
  - Injection site swelling [Recovered/Resolved with Sequelae]
  - Ear pain [Recovered/Resolved with Sequelae]

NARRATIVE: CASE EVENT DATE: 20191011
